FAERS Safety Report 6717446-9 (Version None)
Quarter: 2010Q2

REPORT INFORMATION
  Report Type: 
  Country: None (occurrence: None)
  Receive Date: 20100510
  Receipt Date: 20100430
  Transmission Date: 20101027
  Serious: Yes (Hospitalization)
  Sender: FDA-Public Use
  Company Number: AU-SANOFI-AVENTIS-2010SA025227

PATIENT
  Age: 78 Year
  Sex: Female

DRUGS (9)
  1. LANTUS [Suspect]
     Route: 058
     Dates: start: 20090501
  2. AUTOPEN 24 [Suspect]
     Dates: start: 20090501
  3. AUTOPEN 24 [Suspect]
  4. ASPIRIN [Concomitant]
  5. PANAMAX [Concomitant]
  6. NEXIUM /UNK/ [Concomitant]
  7. VITAMIN D [Concomitant]
  8. COVERSYL /FRA/ [Concomitant]
  9. METFORMIN HYDROCHLORIDE [Concomitant]

REACTIONS (2)
  - CORONARY ARTERY BYPASS [None]
  - HYPOGLYCAEMIA [None]
